FAERS Safety Report 10279612 (Version 1)
Quarter: 2014Q3

REPORT INFORMATION
  Report Type: Spontaneous
  Country: US (occurrence: None)
  Receive Date: 20140702
  Receipt Date: 20140702
  Transmission Date: 20150326
  Serious: No
  Sender: FDA-Public Use
  Company Number: None

PATIENT
  Age: 68 Year
  Sex: Female
  Weight: 67.5 kg

DRUGS (1)
  1. TAXOL [Suspect]
     Active Substance: PACLITAXEL
     Dosage: PATIENT DECLINES FURTHER CHEMO; WITHDREW FROM STUDY TREATMENT  WISHES TO PURSUE HOSPICE CARE.
     Dates: start: 20140313

REACTIONS (5)
  - Nausea [None]
  - Ascites [None]
  - Dehydration [None]
  - Refusal of treatment by patient [None]
  - Vomiting [None]

NARRATIVE: CASE EVENT DATE: 20140316
